FAERS Safety Report 6677790-0 (Version None)
Quarter: 2010Q2

REPORT INFORMATION
  Report Type: 
  Country: None (occurrence: None)
  Receive Date: 20100409
  Receipt Date: 20100409
  Transmission Date: 20101027
  Serious: Yes (Other)
  Sender: FDA-Public Use
  Company Number: None

PATIENT
  Age: 64 Year
  Sex: Male
  Weight: 63.5036 kg

DRUGS (4)
  1. CEPHALEXIN [Suspect]
     Indication: INFECTION
     Dosage: 14 (2 PER DAY) 7 DAYS PO BY MOUTH
     Route: 048
     Dates: start: 20100122, end: 20100129
  2. NAPROXEN [Concomitant]
  3. TYLENOL #3 WITH CODEIN [Concomitant]
  4. BACLOFEN [Concomitant]

REACTIONS (3)
  - ARTHRALGIA [None]
  - PRODUCT SUBSTITUTION ISSUE [None]
  - TENDONITIS [None]
